FAERS Safety Report 4897438-5 (Version None)
Quarter: 2006Q1

REPORT INFORMATION
  Report Type: 
  Country: None (occurrence: None)
  Receive Date: 20060130
  Receipt Date: 20060130
  Transmission Date: 20060701
  Serious: Yes (Other)
  Sender: FDA-Public Use
  Company Number: None

PATIENT
  Sex: Female
  Weight: 62.5964 kg

DRUGS (1)
  1. OXYCODONE 20MG ER TB 20 MG ^DAVA^ -IMPAX- NDC #68774-0162-01 [Suspect]
     Indication: OSTEOMYELITIS
     Dosage: 20 MG Q 10H PO
     Route: 048
     Dates: start: 20060108, end: 20060123

REACTIONS (7)
  - ABDOMINAL PAIN [None]
  - DRUG WITHDRAWAL SYNDROME [None]
  - FEELING ABNORMAL [None]
  - FEELING JITTERY [None]
  - INTESTINAL FUNCTIONAL DISORDER [None]
  - MALAISE [None]
  - PHARMACEUTICAL PRODUCT COMPLAINT [None]
